FAERS Safety Report 9261395 (Version 2)
Quarter: 2013Q2

REPORT INFORMATION
  Report Type: Spontaneous
  Country: SK (occurrence: SK)
  Receive Date: 20130429
  Receipt Date: 20130506
  Transmission Date: 20140414
  Serious: Yes (Death, Hospitalization, Other)
  Sender: FDA-Public Use
  Company Number: SK-BAYER-2013-049754

PATIENT
  Age: 61 Year
  Sex: Male

DRUGS (2)
  1. NEXAVAR [Suspect]
     Indication: RENAL CANCER METASTATIC
     Dosage: UNK
     Route: 048
     Dates: start: 20121122
  2. NEXAVAR [Suspect]
     Indication: METASTASES TO LUNG

REACTIONS (4)
  - Pneumonia [Fatal]
  - Pancytopenia [None]
  - Vascular insufficiency [None]
  - Nervous system disorder [None]
